FAERS Safety Report 4309895-3 (Version None)
Quarter: 2004Q1

REPORT INFORMATION
  Report Type: 
  Country: None (occurrence: None)
  Receive Date: 20040303
  Receipt Date: 20040116
  Transmission Date: 20041129
  Serious: No
  Sender: FDA-Public Use
  Company Number: US-BRISTOL-MYERS SQUIBB COMPANY-12480505

PATIENT
  Age: 45 Year
  Sex: Female
  Weight: 73 kg

DRUGS (5)
  1. ABILIFY [Suspect]
     Indication: SCHIZOAFFECTIVE DISORDER
     Dosage: STARTED ON 15MG ^2 1/2 MONTHS AGO^ INCREASED TO 25MG APPROX. 2 WEEKS AGO
  2. RISPERDAL [Concomitant]
     Dosage: DOSAGE WAS INCREASED TO 7 MG DAILY
  3. KLONOPIN [Concomitant]
     Dosage: GIVEN IN THE EVENING
  4. LITHIUM [Concomitant]
  5. NAVANE [Concomitant]

REACTIONS (3)
  - DRUG INEFFECTIVE [None]
  - INSOMNIA [None]
  - IRRITABILITY [None]
